FAERS Safety Report 9347482 (Version 1)
Quarter: 2013Q2

REPORT INFORMATION
  Report Type: Spontaneous
  Country: PL (occurrence: PL)
  Receive Date: 20130614
  Receipt Date: 20130614
  Transmission Date: 20140414
  Serious: Yes (Other)
  Sender: FDA-Public Use
  Company Number: PL-RANBAXY-2013R1-70235

PATIENT
  Age: 67 Year
  Sex: Female

DRUGS (2)
  1. FUROSEMIDE [Suspect]
     Indication: RENAL FAILURE CHRONIC
     Dosage: 300 MG, QD
     Route: 042
  2. HYDROCHLOROTHIAZIDE [Suspect]
     Indication: NEPHROPATHY
     Dosage: 200 MG, QD
     Route: 065

REACTIONS (1)
  - Drug ineffective [Unknown]
